FAERS Safety Report 6899795-7 (Version None)
Quarter: 2010Q3

REPORT INFORMATION
  Report Type: 
  Country: None (occurrence: None)
  Receive Date: 20100803
  Receipt Date: 20100726
  Transmission Date: 20110219
  Serious: Yes (Other)
  Sender: FDA-Public Use
  Company Number: CA-ABBOTT-10P-028-0636021-00

PATIENT
  Sex: Male
  Weight: 88.5 kg

DRUGS (1)
  1. MAVIK [Suspect]
     Indication: ESSENTIAL HYPERTENSION
     Dates: start: 20091110

REACTIONS (1)
  - ARTERIAL OCCLUSIVE DISEASE [None]
